FAERS Safety Report 21173781 (Version 1)
Quarter: 2022Q3

REPORT INFORMATION
  Report Type: Spontaneous
  Country: US (occurrence: US)
  Receive Date: 20220804
  Receipt Date: 20220804
  Transmission Date: 20221027
  Serious: No
  Sender: FDA-Public Use
  Company Number: US-PERRIGO-22US001566

PATIENT
  Age: 82 Year
  Sex: Male
  Weight: 70.295 kg

DRUGS (3)
  1. LORATADINE [Suspect]
     Active Substance: LORATADINE
     Indication: Pruritus
     Dosage: 10 MG, QD, PRN
     Route: 048
  2. LORATADINE [Suspect]
     Active Substance: LORATADINE
     Indication: Dry skin
     Dosage: 10 MG, SINGLE
     Route: 048
     Dates: start: 20220202, end: 20220202
  3. LORATADINE [Suspect]
     Active Substance: LORATADINE
     Indication: Sneezing

REACTIONS (1)
  - Off label use [Recovered/Resolved]

NARRATIVE: CASE EVENT DATE: 20220202
